FAERS Safety Report 9468478 (Version 2)
Quarter: 2013Q3

REPORT INFORMATION
  Report Type: Spontaneous
  Country: US (occurrence: US)
  Receive Date: 20130821
  Receipt Date: 20130918
  Transmission Date: 20140515
  Serious: No
  Sender: FDA-Public Use
  Company Number: US-PFIZER INC-2013237175

PATIENT
  Sex: Female

DRUGS (2)
  1. CYTOMEL [Suspect]
     Indication: THYROID NEOPLASM
     Dosage: UNK
  2. SYNTHROID [Suspect]
     Indication: THYROID NEOPLASM
     Dosage: UNK

REACTIONS (2)
  - Drug effect delayed [Recovering/Resolving]
  - Thyroid function test abnormal [Recovering/Resolving]
